FAERS Safety Report 4302740-1 (Version None)
Quarter: 2004Q1

REPORT INFORMATION
  Report Type: 
  Country: None (occurrence: None)
  Receive Date: 20040224
  Receipt Date: 20040204
  Transmission Date: 20041129
  Serious: Yes (Other)
  Sender: FDA-Public Use
  Company Number: PHBS2004IE01717

PATIENT
  Sex: Male

DRUGS (1)
  1. GLEEVEC [Suspect]
     Dosage: 800 MG/D
     Route: 065

REACTIONS (3)
  - ARTHRALGIA [None]
  - DRUG TOLERANCE DECREASED [None]
  - MALAISE [None]
